FAERS Safety Report 5835553-X (Version None)
Quarter: 2008Q3

REPORT INFORMATION
  Report Type: 
  Country: None (occurrence: None)
  Receive Date: 20080806
  Receipt Date: 20080731
  Transmission Date: 20090109
  Serious: Yes (Other)
  Sender: FDA-Public Use
  Company Number: B0529964A

PATIENT
  Sex: Female

DRUGS (2)
  1. TYVERB [Suspect]
     Dosage: 1250MG PER DAY
     Route: 048
  2. CAPECITABINE [Suspect]
     Dosage: 2000MG PER DAY
     Route: 065

REACTIONS (1)
  - ANGINA PECTORIS [None]
